FAERS Safety Report 12346049 (Version 1)
Quarter: 2016Q2

REPORT INFORMATION
  Report Type: Spontaneous
  Country: US (occurrence: None)
  Receive Date: 20160506
  Receipt Date: 20160506
  Transmission Date: 20160815
  Serious: Yes (Hospitalization)
  Sender: FDA-Public Use
  Company Number: None

PATIENT
  Age: 43 Year
  Sex: Male
  Weight: 124.4 kg

DRUGS (1)
  1. BEVACIZUMAB (RHUMAB VEGF) [Suspect]
     Active Substance: BEVACIZUMAB
     Dosage: BEVACIZUMAB (RHUMAB VEGF) 3720 MG - NO DALAYS, PATIENT RECEIVED 3 BEVACIZUMAB INFUSIONS (3720 MG TOTAL) PRIOR TO EVENT. PATIENT RECEIVED ANOTHER LAST DOSE OF BEVACIZUMAB ON 04/25/2016 AFTER THE EVENT.
     Dates: end: 20160411

REACTIONS (2)
  - Seizure [None]
  - Agitation [None]

NARRATIVE: CASE EVENT DATE: 20160417
